FAERS Safety Report 5372550-5 (Version None)
Quarter: 2007Q2

REPORT INFORMATION
  Report Type: 
  Country: None (occurrence: None)
  Receive Date: 20070626
  Receipt Date: 20070611
  Transmission Date: 20071010
  Serious: Yes (Life-Threatening, Hospitalization, Other)
  Sender: FDA-Public Use
  Company Number: 2007RR-08066

PATIENT
  Age: 87 Year
  Sex: Female

DRUGS (3)
  1. FUROSEMIDE [Suspect]
     Dosage: 40 MG, ORAL
     Route: 048
     Dates: end: 20070528
  2. OLMESARTAN MEDOXOMIL [Suspect]
     Dosage: 20 MG, ORAL
     Route: 048
     Dates: end: 20070528
  3. SPIRONOLACTONE [Suspect]
     Dosage: 50 MG, ORAL
     Route: 048
     Dates: end: 20070528

REACTIONS (5)
  - DEHYDRATION [None]
  - DIARRHOEA [None]
  - DRUG INTERACTION [None]
  - HYPERKALAEMIA [None]
  - RENAL FAILURE ACUTE [None]
